FAERS Safety Report 12891499 (Version 1)
Quarter: 2016Q4

REPORT INFORMATION
  Report Type: Spontaneous
  Country: US (occurrence: US)
  Receive Date: 20161026
  Receipt Date: 20161026
  Transmission Date: 20170207
  Serious: Yes (Other)
  Sender: FDA-Public Use
  Company Number: None

PATIENT
  Age: 61 Year
  Sex: Male
  Weight: 121.05 kg

DRUGS (4)
  1. D [Concomitant]
  2. ASPRIN [Concomitant]
     Active Substance: ASPIRIN
  3. LEXISCAN [Suspect]
     Active Substance: REGADENOSON
     Indication: ATRIOVENTRICULAR BLOCK
     Route: 042
     Dates: start: 20161005
  4. EXFORGE [Concomitant]
     Active Substance: AMLODIPINE BESYLATE\VALSARTAN

REACTIONS (3)
  - Blood pressure decreased [None]
  - Heart rate decreased [None]
  - Cardiac arrest [None]

NARRATIVE: CASE EVENT DATE: 20161005
